FAERS Safety Report 19677714 (Version 3)
Quarter: 2021Q3

REPORT INFORMATION
  Report Type: Report from Study
  Country: IT (occurrence: IT)
  Receive Date: 20210810
  Receipt Date: 20210827
  Transmission Date: 20211014
  Serious: Yes (Disabling, Other)
  Sender: FDA-Public Use
  Company Number: IT-GW PHARMA-202108ITGW03786

PATIENT

DRUGS (7)
  1. LAMOTRIGINE. [Concomitant]
     Active Substance: LAMOTRIGINE
     Indication: LENNOX-GASTAUT SYNDROME
     Dosage: 300 MILLIGRAM, QD
     Route: 065
     Dates: start: 20190508
  2. EPIDIOLEX [Suspect]
     Active Substance: CANNABIDIOL
     Dosage: 8 MILLIGRAM, QD
     Route: 048
     Dates: start: 2021
  3. VALPROIC ACID. [Suspect]
     Active Substance: VALPROIC ACID
     Indication: PRODUCT USED FOR UNKNOWN INDICATION
     Dosage: UNK
     Route: 065
  4. EPIDIOLEX [Suspect]
     Active Substance: CANNABIDIOL
     Indication: LENNOX-GASTAUT SYNDROME
     Dosage: 20 MILLIGRAM/KILOGRAM, QD
     Route: 048
     Dates: start: 20210319, end: 2021
  5. EPIDIOLEX [Suspect]
     Active Substance: CANNABIDIOL
     Dosage: 12.7 MILLIGRAM/KILOGRAM, QD (DOSE DECREASED)
     Route: 048
     Dates: start: 2021, end: 2021
  6. FELBAMATE. [Concomitant]
     Active Substance: FELBAMATE
     Indication: LENNOX-GASTAUT SYNDROME
     Dosage: 2700 MILLIGRAM, QD
     Route: 065
     Dates: start: 20190531
  7. CLOBAZAM. [Concomitant]
     Active Substance: CLOBAZAM
     Indication: LENNOX-GASTAUT SYNDROME
     Dosage: 30 MILLIGRAM, QD
     Route: 065
     Dates: start: 20170522

REACTIONS (1)
  - Psychomotor hyperactivity [Recovering/Resolving]

NARRATIVE: CASE EVENT DATE: 20210430
